FAERS Safety Report 11152417 (Version 1)
Quarter: 2015Q2

REPORT INFORMATION
  Report Type: Spontaneous
  Country: US (occurrence: US)
  Receive Date: 20150601
  Receipt Date: 20150601
  Transmission Date: 20150821
  Serious: Yes (Hospitalization)
  Sender: FDA-Public Use
  Company Number: US-009507513-1505USA012545

PATIENT
  Sex: Female

DRUGS (3)
  1. VITAMINS (UNSPECIFIED) [Concomitant]
     Active Substance: VITAMINS
  2. OMEGA-3 MARINE TRIGLYCERIDES [Concomitant]
     Active Substance: FISH OIL
  3. PROVENTIL [Suspect]
     Active Substance: ALBUTEROL
     Indication: ASTHMA
     Dosage: 2 PUFFS EVERY 4-6 HOURS
     Route: 055

REACTIONS (5)
  - Wheezing [Not Recovered/Not Resolved]
  - Dyspnoea [Not Recovered/Not Resolved]
  - Cough [Not Recovered/Not Resolved]
  - Product container issue [Unknown]
  - Asthma [Unknown]
